FAERS Safety Report 8001002 (Version 6)
Quarter: 2013Q3

REPORT INFORMATION
  Report Type: Spontaneous
  Country: US (occurrence: US)
  Receive Date: 20110621
  Receipt Date: 20130716
  Transmission Date: 20140515
  Serious: No
  Sender: FDA-Public Use
  Company Number: US-ASTRAZENECA-2010SE28637

PATIENT
  Age: 73 Year
  Sex: Female
  Weight: 99.8 kg

DRUGS (12)
  1. PULMICORT FLEXHALER [Suspect]
     Indication: ASTHMA
     Route: 055
     Dates: start: 2003
  2. PULMICORT FLEXHALER [Suspect]
     Indication: ASTHMA
     Route: 055
     Dates: start: 2006
  3. PULMICORT FLEXHALER [Suspect]
     Indication: ASTHMA
     Route: 055
     Dates: start: 2006
  4. PULMICORT FLEXHALER [Suspect]
     Indication: ASTHMA
     Route: 055
  5. PULMICORT FLEXHALER [Suspect]
     Indication: ASTHMA
     Dosage: 1 TO 2 DOSES FROM 90 MCG
     Route: 055
  6. PULMICORT FLEXHALER [Suspect]
     Indication: ASTHMA
     Dosage: 90 MCG TWO PUFFS BID
     Route: 055
  7. PULMICORT FLEXHALER [Suspect]
     Indication: ASTHMA
     Dosage: 180 MCG TWO PUFFS, BID
     Route: 055
  8. ZESTORETIC [Suspect]
     Indication: HYPERTENSION
     Route: 048
     Dates: start: 1993
  9. LEVOXYL [Concomitant]
     Indication: THYROID DISORDER
  10. COUMADIN [Concomitant]
     Indication: DEEP VEIN THROMBOSIS
  11. COUMADIN [Concomitant]
     Indication: PULMONARY EMBOLISM
  12. SYNTHROID [Concomitant]
     Indication: THYROID DISORDER

REACTIONS (8)
  - Overdose [Unknown]
  - Fatigue [Recovering/Resolving]
  - Dizziness [Recovered/Resolved]
  - Sleep apnoea syndrome [Unknown]
  - Fatigue [Recovered/Resolved]
  - Asthenia [Unknown]
  - Off label use [Unknown]
  - Intentional drug misuse [Unknown]
